FAERS Safety Report 15411232 (Version 1)
Quarter: 2018Q3

REPORT INFORMATION
  Report Type: Spontaneous
  Country: US (occurrence: US)
  Receive Date: 20180919
  Receipt Date: 20180919
  Transmission Date: 20181010
  Serious: Yes (Other)
  Sender: FDA-Public Use
  Company Number: None

PATIENT
  Age: 49 Year
  Sex: Male
  Weight: 77.4 kg

DRUGS (3)
  1. CYCLOBENZAPRINE. [Suspect]
     Active Substance: CYCLOBENZAPRINE
  2. ACETAMINOPHEN 500 MG [Concomitant]
     Active Substance: ACETAMINOPHEN
  3. VOLTAREN 1% TOPICAL GEL [Concomitant]

REACTIONS (1)
  - Pruritus [None]
